FAERS Safety Report 5058460-1 (Version None)
Quarter: 2006Q3

REPORT INFORMATION
  Report Type: 
  Country: None (occurrence: None)
  Receive Date: 20060719
  Receipt Date: 20060704
  Transmission Date: 20061208
  Serious: Yes (Hospitalization)
  Sender: FDA-Public Use
  Company Number: DSA_28482_2006

PATIENT
  Age: 84 Year
  Sex: Male

DRUGS (6)
  1. TEMESTA [Suspect]
     Dosage: 1 MG Q DAY PO
     Route: 048
     Dates: end: 20060522
  2. EUPANTOL [Suspect]
     Dosage: 40 MG Q DAY PO
     Route: 048
     Dates: end: 20060522
  3. HEMIGOXINE NATIVELLE [Suspect]
     Dosage: 0.125 MG Q DAY PO
     Route: 048
     Dates: end: 20060522
  4. GLUCOR [Concomitant]
  5. NOVONORM [Concomitant]
  6. NORSET [Concomitant]

REACTIONS (3)
  - INTERNATIONAL NORMALISED RATIO INCREASED [None]
  - URINARY BLADDER HAEMORRHAGE [None]
  - URINARY RETENTION [None]
